FAERS Safety Report 8809445 (Version 1)
Quarter: 2012Q4

REPORT INFORMATION
  Report Type: Report from Study
  Country: DE (occurrence: DE)
  Receive Date: 20120926
  Receipt Date: 20120926
  Transmission Date: 20130627
  Serious: Yes (Other)
  Sender: FDA-Public Use
  Company Number: DE-ROCHE-1041507

PATIENT
  Age: 58 Year
  Sex: Male
  Weight: 80 kg

DRUGS (9)
  1. ROACTEMRA [Suspect]
     Indication: RHEUMATOID ARTHRITIS
     Route: 042
     Dates: start: 20110519
  2. ROACTEMRA [Suspect]
     Route: 065
     Dates: start: 20120112
  3. ROACTEMRA [Suspect]
     Route: 065
     Dates: start: 20120215
  4. ROACTEMRA [Suspect]
     Route: 065
     Dates: start: 20120315
  5. ROACTEMRA [Suspect]
     Route: 065
     Dates: start: 20120503
  6. PREDNISOLON [Concomitant]
     Indication: RHEUMATOID ARTHRITIS
     Route: 048
  7. PREDNISOLON [Concomitant]
     Route: 065
  8. PREDNISOLON [Concomitant]
     Route: 065
  9. METEX [Concomitant]
     Route: 058
     Dates: start: 20100218

REACTIONS (6)
  - Infection [Recovered/Resolved with Sequelae]
  - Rash pruritic [Not Recovered/Not Resolved]
  - Hypercholesterolaemia [Not Recovered/Not Resolved]
  - Hyperuricaemia [Not Recovered/Not Resolved]
  - Neutrophilia [Not Recovered/Not Resolved]
  - Loose tooth [Not Recovered/Not Resolved]
